FAERS Safety Report 5954680-X (Version None)
Quarter: 2008Q4

REPORT INFORMATION
  Report Type: 
  Country: None (occurrence: None)
  Receive Date: 20081117
  Receipt Date: 20081107
  Transmission Date: 20090506
  Serious: Yes (Hospitalization, Other)
  Sender: FDA-Public Use
  Company Number: PHBS2008ES06277

PATIENT
  Age: 64 Year
  Sex: Male

DRUGS (3)
  1. CYCLOSPORINE [Suspect]
     Indication: LIVER TRANSPLANT
     Dosage: 75 MG, BID
     Dates: start: 20060501, end: 20070801
  2. PREDNISONE TAB [Suspect]
     Indication: LIVER TRANSPLANT
     Dosage: 10 MG/DAY
     Dates: start: 20060501
  3. MYCOPHENOLATE MOFETIL [Concomitant]
     Indication: LIVER TRANSPLANT
     Dosage: 500 MG, BID
     Dates: start: 20070801

REACTIONS (9)
  - CEREBRAL VENTRICLE DILATATION [None]
  - GAIT DISTURBANCE [None]
  - HEADACHE [None]
  - MENINGITIS CRYPTOCOCCAL [None]
  - NORMAL PRESSURE HYDROCEPHALUS [None]
  - PYREXIA [None]
  - RENAL FAILURE [None]
  - VENTRICULAR DRAINAGE [None]
  - VENTRICULO-PERITONEAL SHUNT [None]
